FAERS Safety Report 4796884-8 (Version None)
Quarter: 2005Q4

REPORT INFORMATION
  Report Type: 
  Country: None (occurrence: None)
  Receive Date: 20051006
  Receipt Date: 20051006
  Transmission Date: 20060501
  Serious: Yes (Life-Threatening, Hospitalization)
  Sender: FDA-Public Use
  Company Number: None

PATIENT
  Age: 62 Year
  Sex: Female
  Weight: 76 kg

DRUGS (8)
  1. CYCLOSPORINE [Suspect]
     Indication: IMMUNOSUPPRESSION
     Dosage: 250 MG PO BID
     Route: 048
  2. TACROLIMUS [Suspect]
     Dosage: 1.5
  3. ACYCLOVIR [Concomitant]
  4. CALCIUM CARBONATE [Concomitant]
  5. LANZOPRAZOLE [Concomitant]
  6. MAGNESIUM SULFATE [Concomitant]
  7. PHENYTOIN [Concomitant]
  8. RESPIRIDONE [Concomitant]

REACTIONS (6)
  - BLOOD CREATININE INCREASED [None]
  - BLOOD UREA INCREASED [None]
  - CONFUSIONAL STATE [None]
  - DEMENTIA [None]
  - PLATELET COUNT DECREASED [None]
  - PYREXIA [None]
